FAERS Safety Report 8469467-6 (Version None)
Quarter: 2012Q2

REPORT INFORMATION
  Report Type: 
  Country: None (occurrence: None)
  Receive Date: 20120626
  Receipt Date: 20120619
  Transmission Date: 20120825
  Serious: Yes (Disabling)
  Sender: FDA-Public Use
  Company Number: US-MUTUAL PHARMACEUTICAL COMPANY, INC.-MTCD20120132

PATIENT
  Sex: Female

DRUGS (4)
  1. REGLAN [Suspect]
     Indication: DYSPEPSIA
  2. METOCLOPRAMIDE [Suspect]
     Indication: ABDOMINAL DISTENSION
     Route: 065
  3. METOCLOPRAMIDE [Suspect]
     Indication: DYSPEPSIA
  4. REGLAN [Suspect]
     Indication: ABDOMINAL DISTENSION
     Route: 065

REACTIONS (2)
  - TARDIVE DYSKINESIA [None]
  - UNEVALUABLE EVENT [None]
